FAERS Safety Report 7774928-9 (Version None)
Quarter: 2011Q3

REPORT INFORMATION
  Report Type: 
  Country: None (occurrence: None)
  Receive Date: 20110921
  Receipt Date: 20110909
  Transmission Date: 20111222
  Serious: Yes (Hospitalization)
  Sender: FDA-Public Use
  Company Number: 2011001047

PATIENT
  Age: 64 Year
  Sex: Female

DRUGS (1)
  1. TARCEVA [Suspect]
     Indication: NEOPLASM MALIGNANT
     Dosage: 100 MG, UID/QD, ORAL
     Route: 048
     Dates: start: 20100901

REACTIONS (5)
  - INTESTINAL PERFORATION [None]
  - DUODENAL STENOSIS [None]
  - GLOSSODYNIA [None]
  - SMALL INTESTINAL HAEMORRHAGE [None]
  - NASAL DISCOMFORT [None]
